FAERS Safety Report 18672256 (Version 4)
Quarter: 2021Q2

REPORT INFORMATION
  Report Type: Report from Study
  Country: US (occurrence: US)
  Receive Date: 20201229
  Receipt Date: 20210408
  Transmission Date: 20210717
  Serious: Yes (Other)
  Sender: FDA-Public Use
  Company Number: NVSC2020US339534

PATIENT
  Sex: Female

DRUGS (4)
  1. SANDOSTATIN LAR DEPOT [Suspect]
     Active Substance: OCTREOTIDE ACETATE
     Dosage: 30 MG (Q 8 WEEKS)
     Route: 030
  2. SANDOSTATIN LAR DEPOT [Suspect]
     Active Substance: OCTREOTIDE ACETATE
     Indication: ACROMEGALY
     Dosage: UNK
     Route: 065
  3. SANDOSTATIN LAR DEPOT [Suspect]
     Active Substance: OCTREOTIDE ACETATE
     Indication: PITUITARY ENLARGEMENT
     Dosage: 30 MG, QMO
     Route: 030
     Dates: start: 2000
  4. SANDOSTATIN LAR DEPOT [Suspect]
     Active Substance: OCTREOTIDE ACETATE
     Dosage: 30 MG, QMO
     Route: 065

REACTIONS (12)
  - Injection site pain [Unknown]
  - Inappropriate schedule of product administration [Unknown]
  - Withdrawal syndrome [Unknown]
  - Neck pain [Unknown]
  - Headache [Unknown]
  - Disturbance in attention [Unknown]
  - Gastrointestinal disorder [Unknown]
  - Fatigue [Unknown]
  - Feeling abnormal [Unknown]
  - Confusional state [Unknown]
  - Product dose omission issue [Unknown]
  - Anxiety [Unknown]

NARRATIVE: CASE EVENT DATE: 2000
